FAERS Safety Report 8257265-8 (Version None)
Quarter: 2012Q2

REPORT INFORMATION
  Report Type: 
  Country: None (occurrence: None)
  Receive Date: 20120403
  Receipt Date: 20120323
  Transmission Date: 20120825
  Serious: Yes (Other)
  Sender: FDA-Public Use
  Company Number: RU-AMGEN-RUSSP2011038247

PATIENT
  Age: 25 Year
  Sex: Female
  Weight: 45 kg

DRUGS (2)
  1. NPLATE [Suspect]
     Indication: AUTOIMMUNE THROMBOCYTOPENIA
     Dosage: 1 MUG, QWK
     Route: 058
     Dates: start: 20110201
  2. SORBIFER                           /00023503/ [Concomitant]
     Indication: ANAEMIA
     Dosage: UNK
     Dates: start: 20110201, end: 20110301

REACTIONS (1)
  - UTERINE HAEMATOMA [None]
